FAERS Safety Report 5663947-4 (Version None)
Quarter: 2008Q1

REPORT INFORMATION
  Report Type: 
  Country: None (occurrence: None)
  Receive Date: 20080314
  Receipt Date: 20080305
  Transmission Date: 20080703
  Serious: Yes (Hospitalization)
  Sender: FDA-Public Use
  Company Number: US-JNJFOC-20071101450

PATIENT
  Sex: Female
  Weight: 108.86 kg

DRUGS (5)
  1. REMICADE [Suspect]
     Route: 042
  2. REMICADE [Suspect]
     Route: 042
  3. REMICADE [Suspect]
     Indication: PSORIATIC ARTHROPATHY
     Route: 042
  4. PREDNISONE [Suspect]
     Indication: BRONCHITIS
     Dosage: TAPER
  5. ANTIBIOTICS [Concomitant]
     Indication: BRONCHITIS

REACTIONS (2)
  - ASTHMA [None]
  - PSORIATIC ARTHROPATHY [None]
